FAERS Safety Report 7875894-8 (Version None)
Quarter: 2011Q4

REPORT INFORMATION
  Report Type: 
  Country: None (occurrence: None)
  Receive Date: 20111031
  Receipt Date: 20111027
  Transmission Date: 20120403
  Serious: Yes (Hospitalization)
  Sender: FDA-Public Use
  Company Number: NZ-ROCHE-798326

PATIENT
  Sex: Female
  Weight: 61 kg

DRUGS (3)
  1. PEGINTERFERON ALFA-2A [Suspect]
     Indication: HEPATITIS C
     Route: 058
  2. COPEGUS [Suspect]
     Indication: HEPATITIS C
     Dosage: FREQUENCY:MORNING+EVENING
     Route: 048
  3. PEGINTERFERON ALFA-2A [Suspect]
     Dosage: DOSE REDUSED TO 90 MG/ML
     Route: 058

REACTIONS (1)
  - MIGRAINE [None]
